FAERS Safety Report 4938591-4 (Version None)
Quarter: 2006Q1

REPORT INFORMATION
  Report Type: 
  Country: None (occurrence: None)
  Receive Date: 20060306
  Receipt Date: 20060221
  Transmission Date: 20060701
  Serious: Yes (Death, Other)
  Sender: FDA-Public Use
  Company Number: US200512002320

PATIENT
  Age: 72 Year
  Sex: Female

DRUGS (3)
  1. FORTEO [Suspect]
     Dosage: UNK
     Route: 065
  2. FORTEO PEN (FORTEO PEN) [Concomitant]
  3. METHOTREXATE [Concomitant]

REACTIONS (7)
  - BONE SARCOMA [None]
  - LUNG CANCER METASTATIC [None]
  - METASTASES TO BONE [None]
  - METASTASES TO CENTRAL NERVOUS SYSTEM [None]
  - METASTASES TO LIVER [None]
  - NECROSIS [None]
  - SARCOMA [None]
